FAERS Safety Report 20235607 (Version 1)
Quarter: 2021Q4

REPORT INFORMATION
  Report Type: Spontaneous
  Country: NO (occurrence: NO)
  Receive Date: 20211228
  Receipt Date: 20211228
  Transmission Date: 20220303
  Serious: Yes (Other)
  Sender: FDA-Public Use
  Company Number: None

PATIENT
  Age: 44 Year
  Sex: Male

DRUGS (12)
  1. SAXENDA [Suspect]
     Active Substance: LIRAGLUTIDE
     Dosage: 1.8 MG, QD
     Route: 058
  2. SAXENDA [Suspect]
     Active Substance: LIRAGLUTIDE
     Dosage: 3.0 MG, QD
     Route: 058
     Dates: end: 20210703
  3. SAXENDA [Suspect]
     Active Substance: LIRAGLUTIDE
     Dosage: 2.4 MG, QD
     Route: 058
  4. SAXENDA [Suspect]
     Active Substance: LIRAGLUTIDE
     Dosage: 1.2 MG, QD
     Route: 058
  5. SAXENDA [Suspect]
     Active Substance: LIRAGLUTIDE
     Indication: Obesity
     Dosage: 0.6 MG, QD
     Route: 058
     Dates: start: 20210624
  6. COMIRNATY [Concomitant]
     Active Substance: TOZINAMERAN
     Indication: Immunisation
     Dosage: DOSE FIRST
     Route: 030
     Dates: start: 20210603
  7. COMIRNATY [Concomitant]
     Active Substance: TOZINAMERAN
     Dosage: UNK SECOND DOSAGE
     Route: 030
     Dates: start: 20210715
  8. METOPROLOL SUCCINATE [Concomitant]
     Active Substance: METOPROLOL SUCCINATE
     Indication: Essential hypertension
     Dosage: 100 MG, QD (2 TABLETS PER DAY )
     Route: 048
  9. KALIUMKLORID ORIFARM [Concomitant]
     Indication: Electrolyte substitution therapy
     Dosage: 12.25 G QD (0.5 G MORNING AND 0.75 G EVENING )
     Route: 048
  10. SPIRONOLACTONE [Concomitant]
     Active Substance: SPIRONOLACTONE
     Indication: Essential hypertension
     Dosage: UNK
     Route: 065
  11. HYDROCHLOROTHIAZIDE\LOSARTAN [Concomitant]
     Active Substance: HYDROCHLOROTHIAZIDE\LOSARTAN
     Indication: Essential hypertension
     Dosage: 1 DF QD, (1 TABLET PER DAY)
     Route: 048
  12. LERKANIDIPIN ACTAVIS [Concomitant]
     Indication: Essential hypertension
     Dosage: 20 MG, QD (1 TABLET PER DAY)
     Route: 048

REACTIONS (1)
  - Chorioretinopathy [Recovering/Resolving]

NARRATIVE: CASE EVENT DATE: 20210703
